FAERS Safety Report 16616461 (Version 1)
Quarter: 2019Q3

REPORT INFORMATION
  Report Type: Spontaneous
  Country: US (occurrence: US)
  Receive Date: 20190723
  Receipt Date: 20190723
  Transmission Date: 20191004
  Serious: Yes (Life-Threatening, Hospitalization)
  Sender: FDA-Public Use
  Company Number: None

PATIENT
  Age: 68 Year
  Sex: Female
  Weight: 74.25 kg

DRUGS (8)
  1. ACYCLOVIR. [Concomitant]
     Active Substance: ACYCLOVIR
  2. NEXIUM [Concomitant]
     Active Substance: ESOMEPRAZOLE MAGNESIUM
  3. TRAVATAN [Concomitant]
     Active Substance: TRAVOPROST
  4. CREAM (AS NEEDED) FOR COLD SORES [Concomitant]
  5. BETAMETHASONE TOPICAL CREAM (AS NEEDED) FOR ECZEMA [Concomitant]
  6. CALCIUM VITAMIN [Concomitant]
  7. ASPIRIN. [Concomitant]
     Active Substance: ASPIRIN
  8. CEPHALEXIN 500 MG CAPSULE [Suspect]
     Active Substance: CEPHALEXIN
     Indication: URINARY TRACT INFECTION
     Dosage: ?          QUANTITY:28 CAPSULE(S);?
     Route: 048
     Dates: start: 20190722, end: 20190722

REACTIONS (6)
  - Urticaria [None]
  - Anaphylactic reaction [None]
  - Pharyngeal swelling [None]
  - Eye swelling [None]
  - Dysphagia [None]
  - Swelling face [None]

NARRATIVE: CASE EVENT DATE: 20190722
